FAERS Safety Report 8438307-3 (Version None)
Quarter: 2012Q2

REPORT INFORMATION
  Report Type: 
  Country: None (occurrence: None)
  Receive Date: 20120614
  Receipt Date: 20120604
  Transmission Date: 20120825
  Serious: Yes (Other)
  Sender: FDA-Public Use
  Company Number: IT-FRI-1000030456

PATIENT
  Sex: Female

DRUGS (2)
  1. LITHIUM [Concomitant]
     Indication: BIPOLAR I DISORDER
     Route: 048
  2. ESCITALOPRAM OXALATE [Suspect]
     Indication: BIPOLAR I DISORDER
     Dosage: 8 DF
     Route: 048
     Dates: start: 20120221, end: 20120325

REACTIONS (1)
  - GINGIVAL BLEEDING [None]
